APPROVED DRUG PRODUCT: AMMONIUM CHLORIDE
Active Ingredient: AMMONIUM CHLORIDE
Strength: 5MEQ/ML
Dosage Form/Route: INJECTABLE;INJECTION
Application: A083130 | Product #001
Applicant: ABBOTT LABORATORIES PHARMACEUTICAL PRODUCTS DIV
Approved: Approved Prior to Jan 1, 1982 | RLD: No | RS: No | Type: DISCN